FAERS Safety Report 15690850 (Version 2)
Quarter: 2018Q4

REPORT INFORMATION
  Report Type: Spontaneous
  Country: US (occurrence: US)
  Receive Date: 20181205
  Receipt Date: 20181220
  Transmission Date: 20190205
  Serious: Yes (Other)
  Sender: FDA-Public Use
  Company Number: US-SA-2018SA327782

PATIENT
  Sex: Female

DRUGS (5)
  1. TAXOTERE [Suspect]
     Active Substance: DOCETAXEL
     Dosage: UNK
     Route: 042
     Dates: start: 20101221, end: 20101221
  2. TRASTUZUMAB. [Concomitant]
     Active Substance: TRASTUZUMAB
     Dosage: 798 MG
     Route: 042
     Dates: start: 20101201, end: 20101201
  3. CYTOXAN [Concomitant]
     Active Substance: CYCLOPHOSPHAMIDE
     Dosage: UNK
     Dates: start: 20101014, end: 20101014
  4. PARAPLATIN [Concomitant]
     Active Substance: CARBOPLATIN
     Dosage: 800 MG
     Route: 042
     Dates: start: 20101102, end: 20101102
  5. TAXOTERE [Suspect]
     Active Substance: DOCETAXEL
     Dosage: UNK
     Route: 042
     Dates: start: 20101014, end: 20101014

REACTIONS (1)
  - Alopecia [Not Recovered/Not Resolved]
